FAERS Safety Report 23448152 (Version 4)
Quarter: 2024Q1

REPORT INFORMATION
  Report Type: Other
  Country: US (occurrence: US)
  Receive Date: 20240126
  Receipt Date: 20240326
  Transmission Date: 20240410
  Serious: No
  Sender: FDA-Public Use
  Company Number: US-TRAVERE-2023TVT00878

PATIENT
  Sex: Male
  Weight: 71.67 kg

DRUGS (9)
  1. FILSPARI [Suspect]
     Active Substance: SPARSENTAN
     Indication: IgA nephropathy
     Route: 048
  2. TARPEYO [Suspect]
     Active Substance: BUDESONIDE
  3. ATORVASTATIN [Concomitant]
     Active Substance: ATORVASTATIN
  4. VITAMIN D3 [Concomitant]
     Active Substance: CHOLECALCIFEROL
  5. CALCIUM\VITAMIN D [Concomitant]
     Active Substance: CALCIUM\VITAMIN D
  6. FISH OIL [Concomitant]
     Active Substance: FISH OIL
  7. MYCOPHENOLIC ACID [Concomitant]
     Active Substance: MYCOPHENOLIC ACID
  8. DILTIAZEM [Concomitant]
     Active Substance: DILTIAZEM
  9. CALCIUM [Concomitant]
     Active Substance: CALCIUM

REACTIONS (6)
  - Visual impairment [Recovered/Resolved]
  - Dizziness [Recovered/Resolved]
  - Asthenia [Unknown]
  - Mobility decreased [Unknown]
  - Dyspnoea [None]
  - Urticaria [Recovered/Resolved]
